FAERS Safety Report 4538253-1 (Version None)
Quarter: 2004Q4

REPORT INFORMATION
  Report Type: 
  Country: None (occurrence: None)
  Receive Date: 20041223
  Receipt Date: 20041223
  Transmission Date: 20050328
  Serious: Yes (Life-Threatening, Hospitalization)
  Sender: FDA-Public Use
  Company Number: None

PATIENT
  Sex: Male
  Weight: 83.1 kg

DRUGS (1)
  1. ULTRAVIST 370 [Suspect]
     Indication: COMPUTERISED TOMOGRAM ABDOMEN
     Dosage: 160 ML ONCE INTRAVENOUS
     Route: 042
     Dates: start: 20041222, end: 20041222

REACTIONS (5)
  - APNOEA [None]
  - EYE ROLLING [None]
  - FLUSHING [None]
  - LOSS OF CONSCIOUSNESS [None]
  - PULSE ABSENT [None]
